FAERS Safety Report 7768889-6 (Version None)
Quarter: 2011Q3

REPORT INFORMATION
  Report Type: 
  Country: None (occurrence: None)
  Receive Date: 20110922
  Receipt Date: 20101101
  Transmission Date: 20111222
  Serious: No
  Sender: FDA-Public Use
  Company Number: US-ASTRAZENECA-2010SE13100

PATIENT
  Weight: 89.4 kg

DRUGS (4)
  1. SEROQUEL XR [Suspect]
     Route: 048
  2. SEROQUEL XR [Suspect]
     Indication: INSOMNIA
     Route: 048
  3. SEROQUEL XR [Suspect]
     Indication: NERVOUSNESS
     Route: 048
  4. SEROQUEL XR [Suspect]
     Route: 048

REACTIONS (6)
  - DRUG DOSE OMISSION [None]
  - NASOPHARYNGITIS [None]
  - BRONCHITIS [None]
  - UPPER-AIRWAY COUGH SYNDROME [None]
  - ADVERSE DRUG REACTION [None]
  - INFLUENZA LIKE ILLNESS [None]
